FAERS Safety Report 16998428 (Version 1)
Quarter: 2019Q4

REPORT INFORMATION
  Report Type: Spontaneous
  Country: UA (occurrence: UA)
  Receive Date: 20191106
  Receipt Date: 20191106
  Transmission Date: 20200122
  Serious: Yes (Hospitalization)
  Sender: FDA-Public Use
  Company Number: UA-TEVA-2019-UA-1132120

PATIENT
  Age: 49 Year
  Sex: Female

DRUGS (11)
  1. CISPLATIN. [Suspect]
     Active Substance: CISPLATIN
     Indication: PRECURSOR T-LYMPHOBLASTIC LYMPHOMA/LEUKAEMIA
     Dosage: DHAP REGIMEN, HIGH-DOSE
     Route: 065
     Dates: start: 2017
  2. DEXAMETHASONE. [Suspect]
     Active Substance: DEXAMETHASONE
     Indication: PRECURSOR T-LYMPHOBLASTIC LYMPHOMA/LEUKAEMIA
     Dosage: DHAP REGIMEN, HIGH-DOSE
     Route: 065
     Dates: start: 2017
  3. IMATINIB. [Concomitant]
     Active Substance: IMATINIB MESYLATE
     Indication: CHRONIC MYELOID LEUKAEMIA
     Dosage: 400 MILLIGRAM DAILY;
     Route: 065
  4. CYTARABIN [Suspect]
     Active Substance: CYTARABINE
     Indication: PRECURSOR T-LYMPHOBLASTIC LYMPHOMA/LEUKAEMIA
     Dosage: DHAP REGIMEN, HIGH-DOSE
     Route: 065
     Dates: start: 2017
  5. PREDNISOLONE. [Suspect]
     Active Substance: PREDNISOLONE
     Indication: PRECURSOR T-LYMPHOBLASTIC LYMPHOMA/LEUKAEMIA
     Dosage: CHOP REGIMEN; 3 COURSES
     Route: 065
     Dates: start: 2017
  6. GEMCITABINE. [Concomitant]
     Active Substance: GEMCITABINE
     Indication: PRECURSOR T-LYMPHOBLASTIC LYMPHOMA/LEUKAEMIA
     Dosage: GVC REGIMEN; 3 COURSES
     Route: 065
  7. ENDOXAN [Suspect]
     Active Substance: CYCLOPHOSPHAMIDE
     Indication: PRECURSOR T-LYMPHOBLASTIC LYMPHOMA/LEUKAEMIA
     Dosage: CHOP REGIMEN; 3 COURSES
     Route: 065
     Dates: start: 2017
  8. SOLU-MEDROL [Concomitant]
     Active Substance: METHYLPREDNISOLONE SODIUM SUCCINATE
     Indication: PRECURSOR T-LYMPHOBLASTIC LYMPHOMA/LEUKAEMIA
     Dosage: GVC REGIMEN; 3 COURSES
     Route: 065
  9. ADRIABLASTIN [Suspect]
     Active Substance: DOXORUBICIN HYDROCHLORIDE
     Indication: PRECURSOR T-LYMPHOBLASTIC LYMPHOMA/LEUKAEMIA
     Dosage: CHOP REGIMEN; 3 COURSES
     Route: 065
     Dates: start: 2017
  10. VINCRISTINE [Suspect]
     Active Substance: VINCRISTINE
     Indication: PRECURSOR T-LYMPHOBLASTIC LYMPHOMA/LEUKAEMIA
     Dosage: CHOP REGIMEN; 3 COURSES
     Route: 065
     Dates: start: 2017
  11. VINORELBINE [Concomitant]
     Active Substance: VINORELBINE TARTRATE
     Indication: PRECURSOR T-LYMPHOBLASTIC LYMPHOMA/LEUKAEMIA
     Dosage: GVC REGIMEN; 3 COURSES
     Route: 065

REACTIONS (3)
  - Haematotoxicity [Recovering/Resolving]
  - Therapy non-responder [Unknown]
  - Adverse drug reaction [Recovering/Resolving]
